FAERS Safety Report 18186380 (Version 1)
Quarter: 2020Q3

REPORT INFORMATION
  Report Type: Spontaneous
  Country: US (occurrence: US)
  Receive Date: 20200823
  Receipt Date: 20200823
  Transmission Date: 20201103
  Serious: No
  Sender: FDA-Public Use
  Company Number: None

PATIENT
  Age: 46 Year
  Sex: Female
  Weight: 74.25 kg

DRUGS (1)
  1. EMGALITY [Suspect]
     Active Substance: GALCANEZUMAB-GNLM
     Indication: MIGRAINE
     Route: 058
     Dates: start: 20191207, end: 20200807

REACTIONS (12)
  - Back pain [None]
  - Fatigue [None]
  - Panic attack [None]
  - Paraesthesia [None]
  - Insomnia [None]
  - Dizziness [None]
  - Chest pain [None]
  - Anxiety [None]
  - Palpitations [None]
  - Hypoaesthesia [None]
  - Cough [None]
  - Injection site urticaria [None]
